FAERS Safety Report 4462259-4 (Version None)
Quarter: 2004Q3

REPORT INFORMATION
  Report Type: 
  Country: None (occurrence: None)
  Receive Date: 20040929
  Receipt Date: 20040621
  Transmission Date: 20050211
  Serious: Yes (Hospitalization, Other)
  Sender: FDA-Public Use
  Company Number: FR-GLAXOSMITHKLINE-B0336854A

PATIENT
  Age: 38 Year
  Sex: Female
  Weight: 61 kg

DRUGS (2)
  1. ZYBAN [Suspect]
     Dosage: 150MG TWICE PER DAY
     Route: 048
     Dates: start: 20011205, end: 20011228
  2. NEXEN [Suspect]
     Dosage: 100MG TWICE PER DAY
     Route: 048
     Dates: start: 20011205, end: 20011218

REACTIONS (4)
  - GENERALISED OEDEMA [None]
  - NEPHROTIC SYNDROME [None]
  - RENAL FAILURE [None]
  - WEIGHT INCREASED [None]
